FAERS Safety Report 5920236-8 (Version None)
Quarter: 2008Q4

REPORT INFORMATION
  Report Type: 
  Country: None (occurrence: None)
  Receive Date: 20081016
  Receipt Date: 20081009
  Transmission Date: 20090506
  Serious: Yes (Other)
  Sender: FDA-Public Use
  Company Number: US-ALLERGAN-0811845US

PATIENT
  Sex: Female

DRUGS (2)
  1. PRED FORTE [Suspect]
     Indication: CONJUNCTIVITIS ALLERGIC
     Dosage: 1 GTT, SINGLE
     Route: 047
     Dates: start: 20080916, end: 20080916
  2. STEROID [Concomitant]
     Route: 061

REACTIONS (4)
  - CORNEAL EROSION [None]
  - EYE IRRITATION [None]
  - EYELID EXFOLIATION [None]
  - VISUAL ACUITY REDUCED [None]
